FAERS Safety Report 25727055 (Version 1)
Quarter: 2025Q3

REPORT INFORMATION
  Report Type: Spontaneous
  Country: US (occurrence: None)
  Receive Date: 20250825
  Receipt Date: 20250825
  Transmission Date: 20251020
  Serious: Yes (Other)
  Sender: FDA-CTU
  Company Number: None

PATIENT
  Age: 38 Year
  Sex: Female

DRUGS (1)
  1. BEXAROTENE [Suspect]
     Active Substance: BEXAROTENE
     Indication: Cutaneous T-cell lymphoma
     Dosage: 75  MG DAILY ORAL?
     Route: 048
     Dates: start: 20250729, end: 20250801

REACTIONS (4)
  - Lethargy [None]
  - Pain [None]
  - Myalgia [None]
  - Epistaxis [None]

NARRATIVE: CASE EVENT DATE: 20250801
